FAERS Safety Report 10379860 (Version 3)
Quarter: 2015Q1

REPORT INFORMATION
  Report Type: Report from Study
  Country: DE (occurrence: DE)
  Receive Date: 20140812
  Receipt Date: 20150123
  Transmission Date: 20150720
  Serious: Yes (Death, Hospitalization, Other)
  Sender: FDA-Public Use
  Company Number: DE-ABBVIE-14P-062-1270521-00

PATIENT
  Age: 69 Year
  Sex: Male

DRUGS (4)
  1. TRENANTONE [Suspect]
     Active Substance: LEUPROLIDE ACETATE
     Route: 050
  2. VESIKUR [Concomitant]
     Active Substance: SOLIFENACIN SUCCINATE
     Indication: PRODUCT USED FOR UNKNOWN INDICATION
  3. TRENANTONE [Suspect]
     Active Substance: LEUPROLIDE ACETATE
     Indication: PROSTATE CANCER
     Route: 050
     Dates: start: 20120828, end: 20141108
  4. BICALUTIN [Concomitant]
     Indication: PRODUCT USED FOR UNKNOWN INDICATION
     Dates: start: 2012, end: 201402

REACTIONS (3)
  - Multi-organ failure [Fatal]
  - Gastrointestinal necrosis [Unknown]
  - Ileus [Fatal]

NARRATIVE: CASE EVENT DATE: 2014
